FAERS Safety Report 4559133-1 (Version None)
Quarter: 2005Q1

REPORT INFORMATION
  Report Type: 
  Country: None (occurrence: None)
  Receive Date: 20050121
  Receipt Date: 20050121
  Transmission Date: 20050727
  Serious: No
  Sender: FDA-Public Use
  Company Number: None

PATIENT
  Age: 77 Year
  Sex: Female
  Weight: 63.5 kg

DRUGS (3)
  1. DICLOFENAC (DICLOFENAC SODIUM) TABLET (DELAYED RELEASE), 75MG [Suspect]
     Indication: OSTEOARTHRITIS
     Dosage: 1 TABLET, BID, ORAL
     Route: 048
     Dates: start: 20040512
  2. DICLOFENAC (DICLOFENAC SODIUM) TABLET (DELAYED RELEASE), 75MG [Suspect]
  3. MULTIVITAMINS (ERGOCALCIFEROL, THIAMINE HYDROCHLORIDE, RETINOL, RIBOFL [Concomitant]

REACTIONS (1)
  - DYSPEPSIA [None]
